FAERS Safety Report 8532484-1 (Version None)
Quarter: 2012Q3

REPORT INFORMATION
  Report Type: 
  Country: None (occurrence: None)
  Receive Date: 20120716
  Receipt Date: 20120716
  Transmission Date: 20120928
  Serious: No
  Sender: FDA-Public Use
  Company Number: None

PATIENT
  Age: 73 Year
  Sex: Female
  Weight: 81.6475 kg

DRUGS (2)
  1. ACTONEL [Suspect]
     Indication: OSTEOPENIA
     Dosage: ONCE A MONTH
     Dates: start: 20100420, end: 20100420
  2. BONIVA [Suspect]
     Indication: OSTEOPENIA
     Dosage: 150 MG, ONCE A MONTH
     Dates: start: 20100220, end: 20100320

REACTIONS (4)
  - DIARRHOEA [None]
  - LISTLESS [None]
  - FATIGUE [None]
  - IMPAIRED WORK ABILITY [None]
